FAERS Safety Report 7466500-5 (Version None)
Quarter: 2011Q2

REPORT INFORMATION
  Report Type: 
  Country: None (occurrence: None)
  Receive Date: 20110509
  Receipt Date: 20100817
  Transmission Date: 20111010
  Serious: No
  Sender: FDA-Public Use
  Company Number: US-ALEXION-A201001017

PATIENT
  Sex: Female

DRUGS (2)
  1. PREDNISONE [Concomitant]
     Indication: PAROXYSMAL NOCTURNAL HAEMOGLOBINURIA
  2. SOLIRIS [Suspect]
     Indication: PAROXYSMAL NOCTURNAL HAEMOGLOBINURIA
     Dosage: UNK
     Route: 042

REACTIONS (3)
  - ARTHRITIS [None]
  - BLOOD CHOLESTEROL INCREASED [None]
  - CONDITION AGGRAVATED [None]
